FAERS Safety Report 18573577 (Version 1)
Quarter: 2020Q4

REPORT INFORMATION
  Report Type: Spontaneous
  Country: CZ (occurrence: CZ)
  Receive Date: 20201203
  Receipt Date: 20201203
  Transmission Date: 20210114
  Serious: Yes (Hospitalization, Other)
  Sender: FDA-Public Use
  Company Number: NVSC2020CZ311954

PATIENT
  Age: 66 Year
  Sex: Female

DRUGS (1)
  1. LINEZOLID. [Suspect]
     Active Substance: LINEZOLID
     Indication: STAPHYLOCOCCUS TEST POSITIVE
     Dosage: UNK
     Route: 065

REACTIONS (5)
  - White blood cell count increased [Recovering/Resolving]
  - Staphylococcal infection [Unknown]
  - C-reactive protein increased [Recovering/Resolving]
  - Incision site impaired healing [Unknown]
  - Wound necrosis [Unknown]
